FAERS Safety Report 20032947 (Version 1)
Quarter: 2021Q4

REPORT INFORMATION
  Report Type: Spontaneous
  Country: RU (occurrence: RU)
  Receive Date: 20211104
  Receipt Date: 20211104
  Transmission Date: 20220304
  Serious: Yes (Hospitalization, Other)
  Sender: FDA-Public Use
  Company Number: RU-ABBVIE-21K-251-4147401-00

PATIENT
  Age: 14 Year
  Sex: Female

DRUGS (2)
  1. VALPROIC ACID [Suspect]
     Active Substance: VALPROIC ACID
     Indication: Epilepsy
     Route: 065
  2. VALPROIC ACID [Suspect]
     Active Substance: VALPROIC ACID
     Route: 065

REACTIONS (10)
  - Loss of consciousness [Recovered/Resolved]
  - Seizure [Unknown]
  - Urinary incontinence [Recovered/Resolved]
  - Skin discolouration [Unknown]
  - Dark circles under eyes [Unknown]
  - Nail growth abnormal [Unknown]
  - Menstrual disorder [Recovering/Resolving]
  - Hypertrichosis [Unknown]
  - Weight increased [Unknown]
  - Alopecia [Unknown]
